FAERS Safety Report 10946402 (Version 1)
Quarter: 2015Q1

REPORT INFORMATION
  Report Type: Spontaneous
  Country: GB (occurrence: GB)
  Receive Date: 20150323
  Receipt Date: 20150323
  Transmission Date: 20150721
  Serious: Yes (Hospitalization)
  Sender: FDA-Public Use
  Company Number: US-ASTRAZENECA-2015SE06091

PATIENT
  Age: 133 Day
  Sex: Male

DRUGS (1)
  1. SYNAGIS [Suspect]
     Active Substance: PALIVIZUMAB
     Indication: PRODUCT USED FOR UNKNOWN INDICATION
     Route: 030
     Dates: start: 20150116

REACTIONS (4)
  - Vomiting [Recovered/Resolved]
  - Diarrhoea [Recovered/Resolved]
  - Respiratory syncytial virus test positive [Recovered/Resolved]
  - Upper respiratory tract infection [Recovered/Resolved]

NARRATIVE: CASE EVENT DATE: 20150202
